FAERS Safety Report 9725171 (Version 1)
Quarter: 2013Q4

REPORT INFORMATION
  Report Type: Spontaneous
  Country: US (occurrence: US)
  Receive Date: 20131203
  Receipt Date: 20131203
  Transmission Date: 20140711
  Serious: Yes (Hospitalization)
  Sender: FDA-Public Use
  Company Number: US-BEH-2013039098

PATIENT
  Sex: Male
  Weight: 117 kg

DRUGS (14)
  1. HIZENTRA [Suspect]
     Indication: HYPOGAMMAGLOBULINAEMIA
     Route: 058
  2. ACETAMINOPHEN [Concomitant]
  3. DIPHENHYDRAMINE [Concomitant]
  4. LIDOCAINE [Concomitant]
  5. EPI PEN [Concomitant]
  6. CYMBALTA [Concomitant]
  7. COREG [Concomitant]
  8. AMLODIPINE [Concomitant]
  9. LITHIUM CARBONATE [Concomitant]
  10. LANTUS [Concomitant]
  11. APIDRA [Concomitant]
  12. ENALAPRIL [Concomitant]
  13. LAMICTAL [Concomitant]
  14. ASPIRIN [Concomitant]

REACTIONS (3)
  - Discomfort [Unknown]
  - Headache [Unknown]
  - Fatigue [Unknown]
